FAERS Safety Report 21442445 (Version 1)
Quarter: 2022Q4

REPORT INFORMATION
  Report Type: Spontaneous
  Country: US (occurrence: None)
  Receive Date: 20221010
  Receipt Date: 20221010
  Transmission Date: 20230113
  Serious: No
  Sender: FDA-Public Use
  Company Number: None

PATIENT
  Age: 65 Year
  Sex: Male

DRUGS (1)
  1. RIVAROXABAN [Suspect]
     Active Substance: RIVAROXABAN
     Dosage: 20 MG EVERY DAY PO
     Route: 048
     Dates: start: 20191004, end: 20220413

REACTIONS (1)
  - Anaemia [None]

NARRATIVE: CASE EVENT DATE: 20220412
